FAERS Safety Report 6299786-3 (Version None)
Quarter: 2009Q3

REPORT INFORMATION
  Report Type: 
  Country: None (occurrence: None)
  Receive Date: 20090806
  Receipt Date: 20090803
  Transmission Date: 20100115
  Serious: Yes (Hospitalization, Other)
  Sender: FDA-Public Use
  Company Number: US-BRISTOL-MYERS SQUIBB COMPANY-14715361

PATIENT
  Age: 27 Year
  Sex: Female

DRUGS (3)
  1. DEFINITY [Suspect]
     Indication: ECHOCARDIOGRAM
     Dosage: 1DF=1.5 ML DILUTED IN 30 ML OF NORMAL SALINE, ADMINISTRED 10ML
     Route: 040
     Dates: start: 20090723, end: 20090723
  2. ALEVE [Concomitant]
     Indication: PAIN
  3. HYDROCHLOROTHIAZIDE [Concomitant]
     Indication: HYPERTENSION

REACTIONS (3)
  - BLOOD PRESSURE INCREASED [None]
  - SUPRAVENTRICULAR TACHYCARDIA [None]
  - SYNCOPE [None]
